FAERS Safety Report 15782589 (Version 1)
Quarter: 2019Q1

REPORT INFORMATION
  Report Type: Spontaneous
  Country: US (occurrence: US)
  Receive Date: 20190102
  Receipt Date: 20190102
  Transmission Date: 20190417
  Serious: Yes (Other)
  Sender: FDA-Public Use
  Company Number: US-PFIZER INC-2019000025

PATIENT
  Age: 52 Year
  Sex: Female

DRUGS (1)
  1. LYRICA [Suspect]
     Active Substance: PREGABALIN
     Dosage: 50 MG, 2X/DAY [B.I.D. FOR 30 DAYS]
     Route: 048
     Dates: start: 20160815

REACTIONS (7)
  - Osteoporosis [Unknown]
  - Type 2 diabetes mellitus [Unknown]
  - Polyneuropathy [Unknown]
  - Blood oestrogen abnormal [Unknown]
  - Diabetic neuropathy [Unknown]
  - Generalised anxiety disorder [Unknown]
  - Stomatitis [Unknown]

NARRATIVE: CASE EVENT DATE: 20160919
